FAERS Safety Report 10217290 (Version 2)
Quarter: 2014Q4

REPORT INFORMATION
  Report Type: Spontaneous
  Country: US (occurrence: US)
  Receive Date: 20140604
  Receipt Date: 20141013
  Transmission Date: 20150528
  Serious: Yes (Hospitalization, Other)
  Sender: FDA-Public Use
  Company Number: US-009507513-1406USA000584

PATIENT
  Sex: Male

DRUGS (3)
  1. ZOCOR [Suspect]
     Active Substance: SIMVASTATIN
     Dosage: 80 MG, UNK
     Route: 048
     Dates: start: 20060525, end: 2007
  2. ZOCOR [Suspect]
     Active Substance: SIMVASTATIN
     Dosage: 40 MG, UNK
     Route: 048
     Dates: start: 20081120, end: 2012
  3. MEVACOR [Suspect]
     Active Substance: LOVASTATIN
     Dosage: 40 MG, UNK
     Route: 048
     Dates: start: 20070715, end: 2008

REACTIONS (4)
  - Rhabdomyolysis [Unknown]
  - Acute kidney injury [Unknown]
  - Hyponatraemia [Unknown]
  - Amnesia [Unknown]

NARRATIVE: CASE EVENT DATE: 20120522
